FAERS Safety Report 14337153 (Version 1)
Quarter: 2017Q4

REPORT INFORMATION
  Report Type: Spontaneous
  Country: JP (occurrence: JP)
  Receive Date: 20171229
  Receipt Date: 20171229
  Transmission Date: 20180321
  Serious: Yes (Hospitalization)
  Sender: FDA-Public Use
  Company Number: JP-JNJFOC-20171230302

PATIENT
  Sex: Male

DRUGS (3)
  1. TRAMCET [Suspect]
     Active Substance: ACETAMINOPHEN\TRAMADOL
     Indication: PAIN
     Route: 048
  2. TRAMCET [Suspect]
     Active Substance: ACETAMINOPHEN\TRAMADOL
     Indication: PAIN
     Route: 048
  3. NAUZELIN [Concomitant]
     Active Substance: DOMPERIDONE
     Route: 065

REACTIONS (4)
  - Constipation [Recovering/Resolving]
  - Fall [Unknown]
  - Nausea [Recovering/Resolving]
  - Decreased appetite [Recovering/Resolving]
